FAERS Safety Report 5962197-1 (Version None)
Quarter: 2008Q4

REPORT INFORMATION
  Report Type: 
  Country: None (occurrence: None)
  Receive Date: 20081121
  Receipt Date: 20081113
  Transmission Date: 20090506
  Serious: Yes (Other)
  Sender: FDA-Public Use
  Company Number: PHEH2008US09818

PATIENT
  Age: 35 Year
  Sex: Male

DRUGS (2)
  1. GLEEVEC [Suspect]
     Indication: GASTROINTESTINAL STROMAL TUMOUR
     Dosage: UNK
     Dates: end: 20081001
  2. OXYCODONE HCL [Concomitant]
     Dosage: 5-325

REACTIONS (3)
  - HEPATIC NEOPLASM MALIGNANT [None]
  - NEOPLASM PROGRESSION [None]
  - PAIN [None]
